FAERS Safety Report 7372004-0 (Version None)
Quarter: 2011Q1

REPORT INFORMATION
  Report Type: 
  Country: None (occurrence: None)
  Receive Date: 20110324
  Receipt Date: 20100811
  Transmission Date: 20110831
  Serious: No
  Sender: FDA-Public Use
  Company Number: US-BAUSCH-2010BL003431

PATIENT
  Sex: Female

DRUGS (1)
  1. POLYMYXIN B SULFATES AND TRIMETHOPRIM SULFATE [Suspect]
     Indication: PRODUCT USED FOR UNKNOWN INDICATION
     Route: 047

REACTIONS (3)
  - OCULAR HYPERAEMIA [None]
  - PURULENT DISCHARGE [None]
  - EYE PRURITUS [None]
